FAERS Safety Report 11420176 (Version 2)
Quarter: 2015Q4

REPORT INFORMATION
  Report Type: Spontaneous
  Country: US (occurrence: US)
  Receive Date: 20150826
  Receipt Date: 20151028
  Transmission Date: 20160304
  Serious: Yes (Other)
  Sender: FDA-Public Use
  Company Number: US-PFIZER INC-2015280507

PATIENT
  Age: 65 Year
  Sex: Female
  Weight: 73 kg

DRUGS (5)
  1. LIPITOR [Suspect]
     Active Substance: ATORVASTATIN CALCIUM
     Indication: BLOOD CHOLESTEROL INCREASED
     Dosage: 10 MG, 1X/DAY (20 MG HALF TABLET)
     Route: 048
     Dates: start: 200601, end: 201204
  2. ASPIRIN. [Concomitant]
     Active Substance: ASPIRIN
     Indication: CARDIOVASCULAR EVENT PROPHYLAXIS
     Dosage: 81 MG, 1X/DAY
     Dates: start: 200601
  3. LIPITOR [Suspect]
     Active Substance: ATORVASTATIN CALCIUM
     Indication: BLOOD TRIGLYCERIDES INCREASED
  4. ACETAMINOPHEN/IBUPROFEN [Concomitant]
     Indication: PAIN
     Dosage: 200 MG, DAILY, AS NEEDED
     Dates: start: 1990
  5. CHLOR-TAB [Concomitant]
     Indication: MULTIPLE ALLERGIES
     Dosage: 4 MG, DAILY
     Dates: start: 1990

REACTIONS (3)
  - Cataract [Not Recovered/Not Resolved]
  - Type 2 diabetes mellitus [Not Recovered/Not Resolved]
  - Blood glucose increased [Not Recovered/Not Resolved]

NARRATIVE: CASE EVENT DATE: 200712
